FAERS Safety Report 7389451-3 (Version None)
Quarter: 2011Q2

REPORT INFORMATION
  Report Type: 
  Country: None (occurrence: None)
  Receive Date: 20110401
  Receipt Date: 20110324
  Transmission Date: 20111010
  Serious: Yes (Hospitalization)
  Sender: FDA-Public Use
  Company Number: JP-BRISTOL-MYERS SQUIBB COMPANY-15641541

PATIENT
  Age: 22 Year
  Sex: Male

DRUGS (2)
  1. PIPERACILLIN [Suspect]
     Indication: CELLULITIS
     Dosage: INJ
  2. AMIKACIN SULFATE [Suspect]
     Indication: CELLULITIS

REACTIONS (2)
  - RENAL FAILURE ACUTE [None]
  - SYSTEMIC LUPUS ERYTHEMATOSUS [None]
